FAERS Safety Report 9337933 (Version 2)
Quarter: 2013Q3

REPORT INFORMATION
  Report Type: Spontaneous
  Country: US (occurrence: US)
  Receive Date: 20130608
  Receipt Date: 20130806
  Transmission Date: 20140515
  Serious: No
  Sender: FDA-Public Use
  Company Number: US-009507513-1306USA003230

PATIENT
  Age: 54 Year
  Sex: Female
  Weight: 69.39 kg

DRUGS (13)
  1. PEG-INTRON [Suspect]
     Dosage: REDIPEN; 0.4 ML, QW, 120 MCG/0.5ML
     Route: 058
  2. VICTRELIS [Suspect]
     Indication: HEPATITIS C
     Dosage: 800 MG, TID (EVERY 7-9 HOURS)
     Route: 048
     Dates: start: 20130606
  3. REBETOL [Suspect]
     Route: 048
  4. EVISTA [Concomitant]
  5. ZIAC [Concomitant]
     Dosage: 2.5/6.25
  6. PROZAC [Concomitant]
  7. ASPIRIN [Concomitant]
  8. ALEVE [Concomitant]
  9. CHOLECALCIFEROL [Concomitant]
  10. VITAMIN B COMPLEX [Concomitant]
  11. BLACK COHOSH [Concomitant]
  12. IMODIUM A-D [Concomitant]
     Dosage: 1MG/7.5
     Route: 048
  13. PROCRIT [Concomitant]
     Dosage: 400000U/ML, Q WEEK
     Route: 058

REACTIONS (8)
  - Anaemia [Unknown]
  - Fatigue [Unknown]
  - Headache [Unknown]
  - Nausea [Unknown]
  - Diarrhoea [Unknown]
  - Haemoglobin decreased [Unknown]
  - Dyspnoea [Unknown]
  - Dizziness [Unknown]
